FAERS Safety Report 9727463 (Version 2)
Quarter: 2013Q4

REPORT INFORMATION
  Report Type: Spontaneous
  Country: US (occurrence: DE)
  Receive Date: 20131203
  Receipt Date: 20131210
  Transmission Date: 20140711
  Serious: Yes (Hospitalization)
  Sender: FDA-Public Use
  Company Number: DE-FRI-1000051823

PATIENT
  Age: 64 Year
  Sex: Female
  Weight: 37 kg

DRUGS (21)
  1. ROFLUMILAST [Suspect]
     Indication: CHRONIC OBSTRUCTIVE PULMONARY DISEASE
     Dosage: 500 MCG
     Route: 048
     Dates: start: 20130702, end: 20130901
  2. ROFLUMILAST [Suspect]
     Dosage: 500 MCG
     Route: 048
     Dates: start: 20130907, end: 20130922
  3. ROFLUMILAST [Suspect]
     Route: 048
     Dates: start: 20130926, end: 20131018
  4. ROFLUMILAST [Suspect]
     Dates: start: 20131107, end: 20131117
  5. SINGULAIR [Concomitant]
     Dates: start: 20100927
  6. SERETIDE DISCUS [Concomitant]
     Dates: start: 20080124
  7. AXIMAD [Concomitant]
     Dates: start: 20130702
  8. BAMBEC [Concomitant]
     Dates: start: 20081106
  9. GELOMYRTOL FORTE [Concomitant]
     Dates: start: 20130421
  10. SPIRIVA RESPIMAT [Concomitant]
     Dates: start: 20130307
  11. DIABEX [Concomitant]
     Dates: start: 20100927
  12. ZOLMIN [Concomitant]
     Dates: start: 20091207
  13. OMACOR [Concomitant]
     Dates: start: 20110324
  14. ADCAL [Concomitant]
     Dates: start: 20110906
  15. CRAVIT [Concomitant]
     Dates: start: 20130702
  16. VESICARE [Concomitant]
     Dates: start: 20130702
  17. METHYLON [Concomitant]
     Dates: start: 20130502
  18. PROGESTERON DEPO [Concomitant]
     Dates: start: 20091022
  19. BERASIL [Concomitant]
     Dates: start: 20130404
  20. DIGOSIN [Concomitant]
     Dates: start: 20090730
  21. TANATRIL TAB [Concomitant]
     Dates: start: 20090730

REACTIONS (8)
  - Dyspnoea [Recovered/Resolved with Sequelae]
  - Dysuria [Recovered/Resolved with Sequelae]
  - Chest pain [Recovered/Resolved with Sequelae]
  - Benign renal neoplasm [Recovered/Resolved with Sequelae]
  - Abdominal pain upper [Recovered/Resolved with Sequelae]
  - Nausea [Recovering/Resolving]
  - Dyspnoea [Unknown]
  - Anorectal discomfort [Recovering/Resolving]
